FAERS Safety Report 20417709 (Version 1)
Quarter: 2022Q1

REPORT INFORMATION
  Report Type: Spontaneous
  Country: JP (occurrence: JP)
  Receive Date: 20220202
  Receipt Date: 20220202
  Transmission Date: 20220423
  Serious: Yes (Hospitalization)
  Sender: FDA-Public Use
  Company Number: JP-ALLERGAN-2203877US

PATIENT
  Sex: Female

DRUGS (4)
  1. ASENAPINE MALEATE [Suspect]
     Active Substance: ASENAPINE MALEATE
     Indication: Schizophrenia
     Dosage: 20 MG, QD
     Route: 060
  2. OLANZAPINE [Concomitant]
     Active Substance: OLANZAPINE
  3. RISPERIDONE [Concomitant]
     Active Substance: RISPERIDONE
  4. VALPROATE SODIUM [Concomitant]
     Active Substance: VALPROATE SODIUM

REACTIONS (1)
  - Schizophrenia [Unknown]
